FAERS Safety Report 7408997-2 (Version None)
Quarter: 2011Q2

REPORT INFORMATION
  Report Type: 
  Country: None (occurrence: None)
  Receive Date: 20110407
  Receipt Date: 20110407
  Transmission Date: 20111010
  Serious: Yes (Other)
  Sender: FDA-Public Use
  Company Number: None

PATIENT
  Age: 76 Year
  Sex: Female
  Weight: 54 kg

DRUGS (2)
  1. GAMMAGARD [Suspect]
     Indication: PANCYTOPENIA
     Dosage: 20GM ONCE IV
     Route: 042
     Dates: start: 20110113, end: 20110113
  2. GAMMAGARD [Suspect]
     Indication: IMMUNOGLOBULINS DECREASED
     Dosage: 20GM ONCE IV
     Route: 042
     Dates: start: 20110113, end: 20110113

REACTIONS (4)
  - PYREXIA [None]
  - INFUSION RELATED REACTION [None]
  - CHILLS [None]
  - HYPOTENSION [None]
